FAERS Safety Report 12086577 (Version 1)
Quarter: 2016Q1

REPORT INFORMATION
  Report Type: Spontaneous
  Country: US (occurrence: US)
  Receive Date: 20160217
  Receipt Date: 20160217
  Transmission Date: 20160526
  Serious: No
  Sender: FDA-Public Use
  Company Number: US-ALLERGAN-1505267US

PATIENT
  Age: 69 Year
  Sex: Male

DRUGS (2)
  1. BIO TEARS [Suspect]
     Active Substance: POLYVINYL ALCOHOL
     Indication: DRY EYE
     Dosage: 2 GTT, 4-5 TIMES A DAY
     Route: 047
  2. RESTASIS [Suspect]
     Active Substance: CYCLOSPORINE
     Indication: DRY EYE
     Dosage: 2 GTT, BID
     Route: 047

REACTIONS (8)
  - Inappropriate schedule of drug administration [Unknown]
  - Cataract [Unknown]
  - Eye pruritus [Unknown]
  - Eye irritation [Unknown]
  - Ocular hyperaemia [Unknown]
  - Eye haemorrhage [Recovered/Resolved]
  - Eye pruritus [Recovered/Resolved]
  - Wrong technique in product usage process [Unknown]

NARRATIVE: CASE EVENT DATE: 20150319
